FAERS Safety Report 23804460 (Version 1)
Quarter: 2024Q2

REPORT INFORMATION
  Report Type: Spontaneous
  Country: US (occurrence: None)
  Receive Date: 20240501
  Receipt Date: 20240501
  Transmission Date: 20240716
  Serious: Yes (Hospitalization)
  Sender: FDA-Public Use
  Company Number: None

PATIENT
  Age: 35 Year
  Sex: Male
  Weight: 56.1 kg

DRUGS (1)
  1. CISPLATIN [Suspect]
     Active Substance: CISPLATIN
     Dates: end: 20240401

REACTIONS (8)
  - Anaemia [None]
  - White blood cell count decreased [None]
  - Platelet count decreased [None]
  - Blood magnesium decreased [None]
  - Blood sodium decreased [None]
  - Blood calcium decreased [None]
  - Rhinovirus infection [None]
  - Clostridium difficile infection [None]

NARRATIVE: CASE EVENT DATE: 20240411
